FAERS Safety Report 11844965 (Version 2)
Quarter: 2015Q4

REPORT INFORMATION
  Report Type: Report from Study
  Country: CO (occurrence: CO)
  Receive Date: 20151217
  Receipt Date: 20151221
  Transmission Date: 20160305
  Serious: Yes (Death)
  Sender: FDA-Public Use
  Company Number: PHHY2015CO164478

PATIENT
  Sex: Female

DRUGS (2)
  1. AFINITOR [Suspect]
     Active Substance: EVEROLIMUS
     Indication: BREAST CANCER
     Dosage: 10 MG, QD
     Route: 048
     Dates: start: 20150902
  2. EXEMESTANE. [Concomitant]
     Active Substance: EXEMESTANE
     Indication: PRODUCT USED FOR UNKNOWN INDICATION
     Dosage: UNK UNK, QD
     Route: 065

REACTIONS (9)
  - Diarrhoea [Fatal]
  - Injury [Fatal]
  - Feeling abnormal [Fatal]
  - Decreased appetite [Fatal]
  - Vomiting [Fatal]
  - General physical health deterioration [Fatal]
  - Loss of consciousness [Fatal]
  - Agnosia [Fatal]
  - Nervous system disorder [Fatal]
